FAERS Safety Report 13388535 (Version 1)
Quarter: 2017Q1

REPORT INFORMATION
  Report Type: Spontaneous
  Country: GB (occurrence: GB)
  Receive Date: 20170330
  Receipt Date: 20170330
  Transmission Date: 20170429
  Serious: Yes (Life-Threatening, Other)
  Sender: FDA-Public Use
  Company Number: GB-MYLANLABS-2017M1019136

PATIENT

DRUGS (22)
  1. ISOSORBIDE. [Concomitant]
     Active Substance: ISOSORBIDE
  2. OMEPRAZOLE. [Concomitant]
     Active Substance: OMEPRAZOLE
  3. MEMANTINE. [Suspect]
     Active Substance: MEMANTINE
     Indication: MIXED DEMENTIA
     Dosage: UNKNOWN - SLOW TITRATION
     Route: 048
     Dates: start: 20170126, end: 20170307
  4. LANTUS [Concomitant]
     Active Substance: INSULIN GLARGINE
  5. RAMIPRIL. [Concomitant]
     Active Substance: RAMIPRIL
  6. SIMVASTATIN. [Concomitant]
     Active Substance: SIMVASTATIN
  7. GLICLAZIDE [Concomitant]
     Active Substance: GLICLAZIDE
  8. ASPIRIN                            /00002701/ [Concomitant]
     Active Substance: ASPIRIN
  9. ATORVASTATIN [Concomitant]
     Active Substance: ATORVASTATIN
  10. COCODAMOL [Concomitant]
     Active Substance: ACETAMINOPHEN\CODEINE PHOSPHATE
  11. PROCHLORPERAZINE. [Concomitant]
     Active Substance: PROCHLORPERAZINE
  12. SENNA [Concomitant]
     Active Substance: SENNA LEAF\SENNOSIDES\SENNOSIDES A AND B
  13. GLUCOSE [Concomitant]
     Active Substance: DEXTROSE
  14. APIDRA [Concomitant]
     Active Substance: INSULIN GLULISINE
  15. CILOSTAZOL. [Concomitant]
     Active Substance: CILOSTAZOL
  16. CITALOPRAM [Concomitant]
     Active Substance: CITALOPRAM HYDROBROMIDE
  17. GLYCERYL TRINITRATE [Concomitant]
     Active Substance: NITROGLYCERIN
  18. DONEPEZIL. [Concomitant]
     Active Substance: DONEPEZIL
  19. BETAHISTINE [Concomitant]
     Active Substance: BETAHISTINE
  20. METFORMIN [Concomitant]
     Active Substance: METFORMIN HYDROCHLORIDE
  21. NEBIVOLOL. [Concomitant]
     Active Substance: NEBIVOLOL
  22. EMPAGLIFLOZIN [Concomitant]
     Active Substance: EMPAGLIFLOZIN

REACTIONS (2)
  - Suicidal ideation [Unknown]
  - Depression [Unknown]
